FAERS Safety Report 8747881 (Version 2)
Quarter: 2012Q4

REPORT INFORMATION
  Report Type: 
  Country: FR (occurrence: FR)
  Receive Date: 20120827
  Receipt Date: 20120920
  Transmission Date: 20130627
  Serious: Yes (Hospitalization)
  Sender: FDA-Public Use
  Company Number: FR-VIIV HEALTHCARE LIMITED-B0823132A

PATIENT
  Age: 58 None
  Sex: Male

DRUGS (8)
  1. COMBIVIR [Suspect]
     Indication: HIV INFECTION
     Dosage: 1TAB Twice per day
     Route: 048
     Dates: start: 20120627, end: 20120704
  2. BACTRIM [Suspect]
     Indication: ANTIFUNGAL PROPHYLAXIS
     Dosage: 1UNIT Per day
     Route: 048
     Dates: start: 20120612, end: 20120705
  3. ADIAZINE [Suspect]
     Indication: CEREBRAL TOXOPLASMOSIS
     Dosage: 6G per day
     Route: 048
     Dates: start: 20120618, end: 20120709
  4. TRIFLUCAN [Suspect]
     Indication: OESOPHAGEAL CANDIDIASIS
     Dosage: 100MG per day
     Route: 048
     Dates: start: 20120608, end: 20120630
  5. NORVIR [Suspect]
     Indication: HIV INFECTION
     Dosage: 100MG Per day
     Route: 048
     Dates: start: 20120627, end: 20120704
  6. PREZISTA [Suspect]
     Indication: HIV INFECTION
     Dosage: 400MG Twice per day
     Route: 048
     Dates: start: 20120627, end: 20120704
  7. MALOCIDE [Concomitant]
     Indication: CEREBRAL TOXOPLASMOSIS
     Route: 065
     Dates: start: 20120618
  8. FOLINATE [Concomitant]
     Dosage: 25MG per day
     Route: 065
     Dates: start: 20120618

REACTIONS (27)
  - Drug reaction with eosinophilia and systemic symptoms [Recovering/Resolving]
  - Stevens-Johnson syndrome [Recovering/Resolving]
  - Myocarditis [Recovering/Resolving]
  - Dysphagia [Recovering/Resolving]
  - Conjunctivitis [Recovering/Resolving]
  - Rash maculo-papular [Recovering/Resolving]
  - Face oedema [Recovering/Resolving]
  - Eyelid oedema [Recovering/Resolving]
  - Lip haemorrhage [Recovering/Resolving]
  - Pyrexia [Recovering/Resolving]
  - Scrotal oedema [Recovering/Resolving]
  - Skin exfoliation [Recovering/Resolving]
  - Epidermal necrosis [Recovering/Resolving]
  - Cheilitis [Recovering/Resolving]
  - Scab [Recovering/Resolving]
  - Mucosal erosion [Recovering/Resolving]
  - Anal erosion [Recovering/Resolving]
  - Oedema genital [Recovering/Resolving]
  - Penile ulceration [Recovering/Resolving]
  - Lymphadenopathy [Recovering/Resolving]
  - Tachycardia [Recovering/Resolving]
  - Cardiac failure [Recovering/Resolving]
  - Electrocardiogram abnormal [Recovering/Resolving]
  - Troponin increased [Recovering/Resolving]
  - N-terminal prohormone brain natriuretic peptide increased [Recovering/Resolving]
  - Cytomegalovirus chorioretinitis [Unknown]
  - Optic disc haemorrhage [Unknown]
